FAERS Safety Report 15924053 (Version 2)
Quarter: 2019Q1

REPORT INFORMATION
  Report Type: Spontaneous
  Country: US (occurrence: US)
  Receive Date: 20190205
  Receipt Date: 20190219
  Transmission Date: 20190417
  Serious: No
  Sender: FDA-Public Use
  Company Number: US-ALLERGAN-1817223US

PATIENT
  Age: 34 Year
  Sex: Female

DRUGS (3)
  1. TRAZODONE [Concomitant]
     Active Substance: TRAZODONE HYDROCHLORIDE
     Indication: DEPRESSION
  2. BOTOX [Suspect]
     Active Substance: ONABOTULINUMTOXINA
     Indication: PELVIC FLOOR MUSCLE WEAKNESS
     Dosage: 200 UNITS, SINGLE
     Dates: start: 20180301, end: 20180301
  3. TRAZODONE [Concomitant]
     Active Substance: TRAZODONE HYDROCHLORIDE
     Indication: ANXIETY

REACTIONS (16)
  - Off label use [Unknown]
  - Dizziness [Recovering/Resolving]
  - Vision blurred [Recovering/Resolving]
  - Gait disturbance [Recovering/Resolving]
  - Bowel movement irregularity [Recovering/Resolving]
  - Hypoaesthesia [Recovering/Resolving]
  - Diplopia [Recovering/Resolving]
  - Balance disorder [Recovering/Resolving]
  - Paraesthesia [Recovering/Resolving]
  - Dyspnoea [Recovering/Resolving]
  - Hypogeusia [Recovering/Resolving]
  - Pain [Recovering/Resolving]
  - Nausea [Recovering/Resolving]
  - Dysuria [Recovering/Resolving]
  - Muscle tightness [Not Recovered/Not Resolved]
  - Anosmia [Recovering/Resolving]

NARRATIVE: CASE EVENT DATE: 20180301
